FAERS Safety Report 11422616 (Version 1)
Quarter: 2015Q3

REPORT INFORMATION
  Report Type: Spontaneous
  Country: US (occurrence: US)
  Receive Date: 20150827
  Receipt Date: 20150827
  Transmission Date: 20151125
  Serious: Yes (Hospitalization, Other)
  Sender: FDA-Public Use
  Company Number: US-AMGEN-USASP2012002282

PATIENT
  Age: 65 Year
  Sex: Female

DRUGS (6)
  1. ENBREL [Suspect]
     Active Substance: ETANERCEPT
     Dosage: 50 MG, QWK
     Route: 065
     Dates: start: 20050101, end: 201112
  2. ENBREL [Suspect]
     Active Substance: ETANERCEPT
     Dosage: 50 MG, QWK
     Route: 065
  3. ENBREL [Suspect]
     Active Substance: ETANERCEPT
     Indication: RHEUMATOID ARTHRITIS
     Dosage: 50 MG, QWK
     Route: 065
     Dates: start: 20050101, end: 2008
  4. HUMIRA [Concomitant]
     Active Substance: ADALIMUMAB
     Indication: RHEUMATOID ARTHRITIS
     Dosage: UNK
     Dates: end: 2013
  5. XELJANZ [Concomitant]
     Active Substance: TOFACITINIB CITRATE
     Dosage: UNK
     Dates: start: 2013
  6. ENBREL [Suspect]
     Active Substance: ETANERCEPT
     Dosage: 50 MG, QWK
     Route: 065

REACTIONS (15)
  - Anosmia [Not Recovered/Not Resolved]
  - Hypokinesia [Not Recovered/Not Resolved]
  - Ageusia [Not Recovered/Not Resolved]
  - Headache [Not Recovered/Not Resolved]
  - Arthritis [Not Recovered/Not Resolved]
  - Rheumatoid factor increased [Not Recovered/Not Resolved]
  - Chest discomfort [Not Recovered/Not Resolved]
  - Arthropathy [Not Recovered/Not Resolved]
  - Rhinorrhoea [Not Recovered/Not Resolved]
  - Arthralgia [Recovered/Resolved]
  - Pneumonia [Recovered/Resolved]
  - Dizziness [Not Recovered/Not Resolved]
  - Fall [Not Recovered/Not Resolved]
  - Cough [Not Recovered/Not Resolved]
  - Chest pain [Not Recovered/Not Resolved]

NARRATIVE: CASE EVENT DATE: 2008
